FAERS Safety Report 21583438 (Version 2)
Quarter: 2023Q1

REPORT INFORMATION
  Report Type: Spontaneous
  Country: DE (occurrence: DE)
  Receive Date: 20221111
  Receipt Date: 20230110
  Transmission Date: 20230418
  Serious: Yes (Other)
  Sender: FDA-Public Use
  Company Number: DE-BRISTOL-MYERS SQUIBB COMPANY-2022-131504

PATIENT
  Age: 74 Year
  Sex: Female

DRUGS (7)
  1. DEXAMETHASONE [Suspect]
     Active Substance: DEXAMETHASONE
     Indication: Plasma cell myeloma
     Dosage: 20 MG, (DATE OF LAST APPLICATION PRIOR EVENT: 21 MAY 2019)
     Route: 065
     Dates: start: 20190507, end: 20200713
  2. DARATUMUMAB [Suspect]
     Active Substance: DARATUMUMAB
     Indication: Plasma cell myeloma
     Dosage: 1280 MG (DATE OF LAST APPLICATION PRIOR EVENT: 21 MAY 2019)
     Route: 065
     Dates: start: 20190507, end: 20200629
  3. REVLIMID [Suspect]
     Active Substance: LENALIDOMIDE
     Indication: Plasma cell myeloma
     Dosage: 25 MG (DATE OF LAST APPLICATION PRIOR EVENT: 28 MAY 2019)
     Route: 048
     Dates: start: 20190507, end: 20190528
  4. REVLIMID [Suspect]
     Active Substance: LENALIDOMIDE
     Dosage: 20 MG (1.33 DAY)
     Route: 048
     Dates: start: 20190612, end: 20190730
  5. REVLIMID [Suspect]
     Active Substance: LENALIDOMIDE
     Dosage: 10 MG (1.33 DAY)
     Route: 048
     Dates: start: 20190829
  6. REVLIMID [Suspect]
     Active Substance: LENALIDOMIDE
     Dosage: 5 MG (1.33 DAY)
     Route: 048
     Dates: start: 20191105, end: 20200101
  7. REVLIMID [Suspect]
     Active Substance: LENALIDOMIDE
     Dosage: 5 MG (1.33 DAY)
     Route: 048
     Dates: start: 20200303, end: 20211017

REACTIONS (1)
  - Cytopenia [Recovered/Resolved]

NARRATIVE: CASE EVENT DATE: 20190611
